FAERS Safety Report 8338468-0 (Version None)
Quarter: 2012Q1

REPORT INFORMATION
  Report Type: 
  Country: None (occurrence: None)
  Receive Date: 20120329
  Receipt Date: 20081217
  Transmission Date: 20120608
  Serious: Yes (Other)
  Sender: FDA-Public Use
  Company Number: PHEH2008US08244

PATIENT
  Sex: Male

DRUGS (2)
  1. EXELON [Suspect]
     Indication: DEPRESSION
     Dosage: 4.6 MG, QD, TRANSDERMAL
     Route: 062
     Dates: start: 20080909, end: 20080912
  2. EXELON [Suspect]
     Indication: DEMENTIA
     Dosage: 4.6 MG, QD, TRANSDERMAL
     Route: 062
     Dates: start: 20080909, end: 20080912

REACTIONS (6)
  - ASTHENIA [None]
  - DRUG INEFFECTIVE [None]
  - DIZZINESS [None]
  - MALAISE [None]
  - NAUSEA [None]
  - CONFUSIONAL STATE [None]
